FAERS Safety Report 5188797-7 (Version None)
Quarter: 2006Q4

REPORT INFORMATION
  Report Type: 
  Country: None (occurrence: None)
  Receive Date: 20061215
  Receipt Date: 20061206
  Transmission Date: 20070319
  Serious: Yes (Other)
  Sender: FDA-Public Use
  Company Number: 2006SP007917

PATIENT
  Sex: Female

DRUGS (7)
  1. ASMANEX TWISTHALER [Suspect]
     Indication: ASTHMA
     Dosage: PO
     Route: 048
     Dates: start: 20061001
  2. FORADIL [Suspect]
     Indication: DRUG USE FOR UNKNOWN INDICATION
     Dosage: PO
     Route: 048
     Dates: start: 20061001
  3. KEPPRA [Suspect]
     Indication: DRUG USE FOR UNKNOWN INDICATION
     Dates: start: 20060401
  4. SINGULAIR [Concomitant]
  5. AEROBID [Concomitant]
  6. CALCIUM [Concomitant]
  7. VITAMIN D [Concomitant]

REACTIONS (1)
  - INSOMNIA [None]
